FAERS Safety Report 12507970 (Version 2)
Quarter: 2016Q3

REPORT INFORMATION
  Report Type: Spontaneous
  Country: BR (occurrence: BR)
  Receive Date: 20160629
  Receipt Date: 20160707
  Transmission Date: 20161109
  Serious: Yes (Hospitalization, Other)
  Sender: FDA-Public Use
  Company Number: BR-ABBVIE-16P-020-1664092-00

PATIENT
  Age: 75 Year
  Sex: Female
  Weight: 63 kg

DRUGS (7)
  1. HIDANTAL [Suspect]
     Active Substance: PHENYTOIN SODIUM
     Indication: SEIZURE
     Route: 048
     Dates: start: 20160518
  2. DEPAKOTE ER [Suspect]
     Active Substance: DIVALPROEX SODIUM
     Route: 065
     Dates: end: 20160616
  3. DEPAKOTE ER [Suspect]
     Active Substance: DIVALPROEX SODIUM
     Route: 065
     Dates: start: 20160618
  4. DEPAKOTE ER [Suspect]
     Active Substance: DIVALPROEX SODIUM
     Indication: SEIZURE
     Route: 048
     Dates: start: 20160521, end: 20160611
  5. RIVOTRIL [Suspect]
     Active Substance: CLONAZEPAM
     Route: 048
     Dates: start: 20160618
  6. ESC [Concomitant]
     Indication: PANIC DISORDER
     Dosage: MORNING / NIGHT; 10 MG DAILY
     Route: 048
     Dates: start: 20160320, end: 20160611
  7. RIVOTRIL [Suspect]
     Active Substance: CLONAZEPAM
     Indication: SEIZURE
     Route: 048
     Dates: start: 20160330, end: 20160611

REACTIONS (7)
  - Seizure [Recovered/Resolved]
  - Seizure [Recovered/Resolved]
  - Depressed mood [Not Recovered/Not Resolved]
  - Muscle spasms [Unknown]
  - Somnolence [Not Recovered/Not Resolved]
  - Dysstasia [Not Recovered/Not Resolved]
  - Asthenia [Not Recovered/Not Resolved]

NARRATIVE: CASE EVENT DATE: 20160613
